FAERS Safety Report 5124590-9 (Version None)
Quarter: 2006Q4

REPORT INFORMATION
  Report Type: 
  Country: None (occurrence: None)
  Receive Date: 20061011
  Receipt Date: 20060929
  Transmission Date: 20070319
  Serious: Yes (Other)
  Sender: FDA-Public Use
  Company Number: US-JNJFOC-20060803168

PATIENT
  Sex: Male
  Weight: 89.81 kg

DRUGS (16)
  1. REMICADE [Suspect]
     Route: 042
  2. REMICADE [Suspect]
     Route: 042
  3. REMICADE [Suspect]
     Dosage: SECOND TREATMENT
     Route: 042
  4. REMICADE [Suspect]
     Indication: RHEUMATOID ARTHRITIS
     Route: 042
  5. CYCLOGYL [Suspect]
     Indication: IRITIS
     Route: 047
  6. PREDNISONE TAB [Concomitant]
  7. PREDNISONE TAB [Concomitant]
  8. PREDNISONE TAB [Concomitant]
  9. SYNTHROID [Concomitant]
  10. METHOTREXATE [Concomitant]
  11. METHOTREXATE [Concomitant]
  12. METHOTREXATE [Concomitant]
  13. FOLIC ACID [Concomitant]
  14. PERCOCET [Concomitant]
  15. MOBIC [Concomitant]
  16. PROSCAR [Concomitant]

REACTIONS (1)
  - GRAND MAL CONVULSION [None]
